FAERS Safety Report 9404302 (Version 1)
Quarter: 2013Q4

REPORT INFORMATION
  Report Type: Spontaneous
  Country: US (occurrence: None)
  Receive Date: 20130716
  Receipt Date: 20130716
  Transmission Date: 20140711
  Serious: Yes (Hospitalization)
  Sender: FDA-Public Use
  Company Number: None

PATIENT
  Age: 63 Year
  Sex: Female
  Weight: 75.48 kg

DRUGS (17)
  1. ALEMTUZUMAB [Suspect]
     Indication: MULTIPLE SCLEROSIS
     Route: 042
     Dates: start: 20130116, end: 20130318
  2. LIPITOR [Concomitant]
  3. BACLOFEN [Concomitant]
  4. CHOLECALCIFEROL [Concomitant]
  5. AMPYRA [Concomitant]
  6. VALIUM [Concomitant]
  7. LEXAPRO [Concomitant]
  8. ZETIA [Concomitant]
  9. PROVIGIL [Concomitant]
  10. OXYBUTYNIN [Concomitant]
  11. PROTONIX [Concomitant]
  12. POTASSIUM [Concomitant]
  13. LYRICA [Concomitant]
  14. BACTRIM [Concomitant]
  15. RESTORIL [Concomitant]
  16. ZANAFLEX [Concomitant]
  17. TRAMADOL [Concomitant]

REACTIONS (7)
  - Syncope [None]
  - Hyponatraemia [None]
  - Cerebral haemorrhage [None]
  - Leukopenia [None]
  - Fall [None]
  - Laceration [None]
  - Presyncope [None]
